FAERS Safety Report 21932049 (Version 1)
Quarter: 2023Q1

REPORT INFORMATION
  Report Type: Spontaneous
  Country: JP (occurrence: JP)
  Receive Date: 20230131
  Receipt Date: 20230131
  Transmission Date: 20230418
  Serious: Yes (Other)
  Sender: FDA-Public Use
  Company Number: JP-PFIZER INC-PV202300016874

PATIENT
  Age: 9 Decade
  Sex: Female

DRUGS (4)
  1. PAXLOVID [Suspect]
     Active Substance: NIRMATRELVIR\RITONAVIR
     Indication: COVID-19 treatment
     Dosage: PF-07321332 600 MG/DAY,RITONAVIR 200MG/DAY
     Dates: start: 20230119, end: 20230123
  2. DAYVIGO [Concomitant]
     Active Substance: LEMBOREXANT
  3. ZOTEPINE [Concomitant]
     Active Substance: ZOTEPINE
  4. MENATETRENONE [Concomitant]
     Active Substance: MENATETRENONE

REACTIONS (4)
  - Hepatic function abnormal [Recovering/Resolving]
  - Aspartate aminotransferase increased [Recovering/Resolving]
  - Alanine aminotransferase increased [Recovering/Resolving]
  - Off label use [Unknown]

NARRATIVE: CASE EVENT DATE: 20230119
